FAERS Safety Report 7562543-1 (Version None)
Quarter: 2011Q2

REPORT INFORMATION
  Report Type: 
  Country: None (occurrence: None)
  Receive Date: 20110622
  Receipt Date: 20110615
  Transmission Date: 20111010
  Serious: Yes (Death)
  Sender: FDA-Public Use
  Company Number: ZA-CELGENEUS-143-CCAZA-11061977

PATIENT
  Sex: Male
  Weight: 79.2 kg

DRUGS (10)
  1. CIPRO [Concomitant]
     Dosage: 1000 MILLIGRAM
     Route: 048
     Dates: start: 20110426
  2. AZACITIDINE [Suspect]
     Dosage: 150 MILLIGRAM
     Route: 051
     Dates: start: 20110112
  3. IMIPENEM [Concomitant]
     Route: 065
  4. FLUCONAZOLE [Concomitant]
     Dosage: 200 MILLIGRAM
     Route: 048
     Dates: start: 20110426
  5. SPECTRAPAIN [Concomitant]
     Dosage: 6 DOSAGE FORMS
     Route: 048
     Dates: start: 20110426
  6. ANDOLEX [Concomitant]
     Route: 002
     Dates: start: 20110426
  7. AZACITIDINE [Suspect]
     Dosage: 150 MILLIGRAM
     Route: 051
     Dates: start: 20110411, end: 20110415
  8. THALIDOMIDE [Suspect]
     Dosage: 100 MILLIGRAM
     Route: 048
     Dates: start: 20110112, end: 20110411
  9. TRAMADOL HYDROCHLORIDE [Concomitant]
     Dosage: 100 MILLIGRAM
     Route: 048
     Dates: start: 20110426
  10. ALLOPURINOL [Concomitant]
     Dosage: 100 MILLIGRAM
     Route: 048
     Dates: start: 20110426

REACTIONS (3)
  - SEPTIC SHOCK [None]
  - CARDIOPULMONARY FAILURE [None]
  - NEUTROPENIC SEPSIS [None]
